FAERS Safety Report 9977429 (Version 2)
Quarter: 2014Q1

REPORT INFORMATION
  Report Type: Report from Study
  Country: US (occurrence: US)
  Receive Date: 20140306
  Receipt Date: 20140306
  Transmission Date: 20141002
  Serious: No
  Sender: FDA-Public Use
  Company Number: US-ABBVIE-13P-163-1117414-00

PATIENT
  Age: 54 Year
  Sex: Male

DRUGS (10)
  1. HUMIRA [Suspect]
     Indication: CROHN^S DISEASE
     Dates: start: 20130517
  2. ENTOCORT [Concomitant]
     Indication: CROHN^S DISEASE
  3. PENTASA [Concomitant]
     Indication: CROHN^S DISEASE
  4. LISINOPRIL [Concomitant]
     Indication: HYPERTENSION
  5. OMEPRAZOLE [Concomitant]
     Indication: GASTROOESOPHAGEAL REFLUX DISEASE
  6. COLESTIPOL [Concomitant]
     Indication: SHORT-BOWEL SYNDROME
  7. ISOCOLAN [Concomitant]
     Indication: NUTRITIONAL SUPPLEMENTATION
  8. MVI [Concomitant]
  9. VIT D [Concomitant]
  10. VIT B [Concomitant]

REACTIONS (3)
  - Sinus congestion [Not Recovered/Not Resolved]
  - Headache [Not Recovered/Not Resolved]
  - Sinusitis [Recovered/Resolved]
